FAERS Safety Report 19609759 (Version 3)
Quarter: 2021Q4

REPORT INFORMATION
  Report Type: Spontaneous
  Country: US (occurrence: US)
  Receive Date: 20210726
  Receipt Date: 20211026
  Transmission Date: 20220303
  Serious: No
  Sender: FDA-Public Use
  Company Number: US-BRISTOL-MYERS SQUIBB COMPANY-BMS-2021-072951

PATIENT
  Age: 52 Year
  Sex: Female

DRUGS (1)
  1. ORENCIA [Suspect]
     Active Substance: ABATACEPT
     Indication: Product used for unknown indication
     Dosage: 125 MG/ML, ONCE WEEKLY
     Route: 058

REACTIONS (4)
  - Nausea [Unknown]
  - Vomiting [Unknown]
  - Effusion [Unknown]
  - Eye disorder [Unknown]

NARRATIVE: CASE EVENT DATE: 20210722
